FAERS Safety Report 24744802 (Version 1)
Quarter: 2024Q4

REPORT INFORMATION
  Report Type: Spontaneous
  Country: CZ (occurrence: CZ)
  Receive Date: 20241217
  Receipt Date: 20241217
  Transmission Date: 20250114
  Serious: Yes (Other)
  Sender: MYLAN
  Company Number: CZ-002147023-NVSC2024CZ229413

PATIENT
  Age: 75 Year

DRUGS (4)
  1. IMATINIB [Suspect]
     Active Substance: IMATINIB
     Indication: Chronic myeloid leukaemia
     Dosage: 400 MG, QD (DAILY)
     Route: 048
  2. IMATINIB [Suspect]
     Active Substance: IMATINIB
     Dosage: 400 MG, QD (DAILY)
     Route: 048
  3. HYDROXYUREA [Concomitant]
     Active Substance: HYDROXYUREA
     Indication: Cytoreductive surgery
     Dosage: UNK
     Route: 065
  4. UNSPECIFIED INGREDIENT [Concomitant]
     Active Substance: UNSPECIFIED INGREDIENT
     Indication: Product used for unknown indication
     Dosage: UNK
     Route: 065

REACTIONS (6)
  - Atrophy [Unknown]
  - Mastoiditis [Recovering/Resolving]
  - Otitis media chronic [Recovering/Resolving]
  - Diarrhoea [Not Recovered/Not Resolved]
  - Rash [Not Recovered/Not Resolved]
  - Swelling face [Not Recovered/Not Resolved]
